FAERS Safety Report 6303927-9 (Version None)
Quarter: 2009Q3

REPORT INFORMATION
  Report Type: 
  Country: None (occurrence: None)
  Receive Date: 20090805
  Receipt Date: 20090721
  Transmission Date: 20100115
  Serious: Yes (Other)
  Sender: FDA-Public Use
  Company Number: 2009243114

PATIENT
  Age: 78 Year
  Sex: Male

DRUGS (1)
  1. FRAGMIN [Suspect]
     Indication: THROMBOPHLEBITIS
     Dates: end: 20081127

REACTIONS (2)
  - PULMONARY EMBOLISM [None]
  - THROMBOCYTOPENIA [None]
